FAERS Safety Report 9475306 (Version 1)
Quarter: 2013Q3

REPORT INFORMATION
  Report Type: Spontaneous
  Country: GB (occurrence: None)
  Receive Date: 20130820
  Receipt Date: 20130820
  Transmission Date: 20140515
  Serious: Yes (Other)
  Sender: FDA-Public Use
  Company Number: AUG-APL-2013-06712

PATIENT
  Age: 68 Year
  Sex: Male

DRUGS (3)
  1. RIBAVARIN [Suspect]
     Indication: HEPATITIS C
     Route: 048
  2. INCIVO [Suspect]
     Indication: HEPATITIS C
     Route: 048
  3. PEGINTERFERON ALFA-2B [Suspect]
     Indication: HEPATITIS C
     Route: 058

REACTIONS (1)
  - Blood creatinine increased [None]
